FAERS Safety Report 6796121-9 (Version None)
Quarter: 2010Q2

REPORT INFORMATION
  Report Type: 
  Country: None (occurrence: None)
  Receive Date: 20100625
  Receipt Date: 20100616
  Transmission Date: 20101027
  Serious: Yes (Hospitalization, Other)
  Sender: FDA-Public Use
  Company Number: BR-ABBOTT-10P-020-0645561-00

PATIENT
  Sex: Female
  Weight: 68 kg

DRUGS (7)
  1. HUMIRA [Suspect]
     Indication: RHEUMATOID ARTHRITIS
     Route: 058
  2. CHLORTHALIDONE [Concomitant]
     Indication: HYPERTENSION
     Route: 048
  3. PROPRANOLOL [Concomitant]
     Indication: HYPERTENSION
     Route: 048
  4. AZATHIOPRINE [Concomitant]
     Indication: RHEUMATOID ARTHRITIS
     Route: 048
  5. COMBINED FORMULA [Concomitant]
     Indication: RHEUMATOID ARTHRITIS
     Dosage: PREDNISONE 25MG/PARACETAMOL 750MG/MELOXICAM 7.5MG
     Route: 048
  6. OMEPRAZOLE [Concomitant]
     Indication: GASTRIC DISORDER
     Route: 048
  7. DIAZEPAM [Concomitant]
     Indication: ANXIOLYTIC THERAPY
     Route: 048

REACTIONS (2)
  - ERYTHEMA [None]
  - NODULE [None]
